FAERS Safety Report 15426824 (Version 1)
Quarter: 2018Q3

REPORT INFORMATION
  Report Type: Spontaneous
  Country: US (occurrence: US)
  Receive Date: 20180925
  Receipt Date: 20180925
  Transmission Date: 20181010
  Serious: No
  Sender: FDA-Public Use
  Company Number: US-INDIVIOR LIMITED-INDV-107425-2018

PATIENT
  Sex: Male

DRUGS (3)
  1. SUBUTEX [Suspect]
     Active Substance: BUPRENORPHINE HYDROCHLORIDE
     Indication: DRUG DEPENDENCE
     Dosage: 6 TO 7 MG DAILY? 4 MG IN THE MORNING AND 2 TO 3 AT NIGHT, UNK
     Route: 065
     Dates: start: 2007
  2. SUBOXONE [Suspect]
     Active Substance: BUPRENORPHINE HYDROCHLORIDE\NALOXONE HYDROCHLORIDE
     Indication: DRUG DEPENDENCE
     Dosage: 6 TO 7 MG DAILY? 4 MG IN THE MORNING AND 2 TO 3 AT NIGHT, UNK
     Route: 065
     Dates: start: 2007
  3. SUBOXONE [Suspect]
     Active Substance: BUPRENORPHINE HYDROCHLORIDE\NALOXONE HYDROCHLORIDE
     Indication: DRUG DEPENDENCE
     Dosage: 6 TO 7 MG DAILY? 4 MG IN THE MORNING AND 2 TO 3 AT NIGHT, UNK
     Route: 065

REACTIONS (2)
  - Wrong technique in product usage process [Unknown]
  - Product use issue [Unknown]

NARRATIVE: CASE EVENT DATE: 2007
